FAERS Safety Report 5053291-0 (Version None)
Quarter: 2006Q3

REPORT INFORMATION
  Report Type: 
  Country: None (occurrence: None)
  Receive Date: 20060712
  Receipt Date: 20060704
  Transmission Date: 20061208
  Serious: Yes (Hospitalization)
  Sender: FDA-Public Use
  Company Number: GXKR2006TR03785

PATIENT
  Age: 7 Hour
  Sex: Male
  Weight: 3.7 kg

DRUGS (3)
  1. AMIODARONE HCL [Suspect]
     Indication: SUPRAVENTRICULAR TACHYCARDIA
     Dosage: SEE IMAGE
  2. AMIODARONE HCL [Suspect]
     Indication: SUPRAVENTRICULAR TACHYCARDIA
     Dosage: SEE IMAGE
  3. AMIODARONE HCL [Suspect]
     Indication: SUPRAVENTRICULAR TACHYCARDIA
     Dosage: SEE IMAGE

REACTIONS (6)
  - BLOOD ALDOSTERONE INCREASED [None]
  - BRADYCARDIA [None]
  - HYPERKALAEMIA [None]
  - NEONATAL DISORDER [None]
  - RENIN INCREASED [None]
  - SUPRAVENTRICULAR TACHYCARDIA [None]
